FAERS Safety Report 13594520 (Version 4)
Quarter: 2019Q2

REPORT INFORMATION
  Report Type: Report from Study
  Country: US (occurrence: US)
  Receive Date: 20170530
  Receipt Date: 20190523
  Transmission Date: 20190711
  Serious: Yes (Other)
  Sender: FDA-Public Use
  Company Number: US-AMGEN-USASP2017082233

PATIENT
  Age: 40 Year
  Sex: Female

DRUGS (3)
  1. ENBREL [Suspect]
     Active Substance: ETANERCEPT
     Indication: PSORIATIC ARTHROPATHY
     Dosage: UNK
     Route: 065
  2. ENBREL [Suspect]
     Active Substance: ETANERCEPT
     Dosage: UNK, QWK
     Route: 065
  3. HYDROCODONE [Concomitant]
     Active Substance: HYDROCODONE

REACTIONS (6)
  - Psoriatic arthropathy [Unknown]
  - Product dose omission [Unknown]
  - Suicidal behaviour [Unknown]
  - Muscle spasms [Unknown]
  - Gait inability [Unknown]
  - Loss of personal independence in daily activities [Unknown]
